FAERS Safety Report 19954003 (Version 2)
Quarter: 2021Q4

REPORT INFORMATION
  Report Type: Report from Study
  Country: US (occurrence: US)
  Receive Date: 20211014
  Receipt Date: 20211110
  Transmission Date: 20220303
  Serious: Yes (Hospitalization)
  Sender: FDA-Public Use
  Company Number: US-VERTEX PHARMACEUTICALS-2021-001567

PATIENT
  Age: 15 Year
  Sex: Male

DRUGS (11)
  1. TRIKAFTA [Suspect]
     Active Substance: ELEXACAFTOR\IVACAFTOR\TEZACAFTOR
     Indication: Cystic fibrosis
     Dosage: REGULAR DOSAGE
     Route: 048
     Dates: start: 20210107
  2. ASTELIN [Concomitant]
     Active Substance: AZELASTINE HYDROCHLORIDE
     Dosage: 1 SPRAY EACH NOSTRIL, 2 TIMES DAILY PRN
     Route: 045
  3. FLONASE [Concomitant]
     Active Substance: FLUTICASONE PROPIONATE
     Dosage: 15 GRAM, BID (ONE SPRAY EACH NOSTRIL)
     Route: 045
     Dates: start: 20210823
  4. LACTASE [Concomitant]
     Active Substance: LACTASE
  5. CLARITIN [Concomitant]
     Active Substance: LORATADINE
     Dosage: 10 MILLIGRAM, DAILY
     Route: 048
     Dates: start: 20210809
  6. MELATONIN [Concomitant]
     Active Substance: MELATONIN
     Dosage: 1 TABLET EVERY NIGHT AT BEDTIME
     Route: 048
  7. SINGULAIR [Concomitant]
     Active Substance: MONTELUKAST SODIUM
     Dosage: 10 MILLIGRAM, EVERY NIGHT AT BEDTIME
     Route: 048
  8. PROTONEX [Concomitant]
     Dosage: UNK
     Route: 048
     Dates: start: 20210708
  9. GLYCOLAX [Concomitant]
     Active Substance: POLYETHYLENE GLYCOL 3350
     Dosage: 34 GRAM, DAILY
     Route: 048
  10. PROAIR HFA [Concomitant]
     Active Substance: ALBUTEROL SULFATE
     Dosage: 90 MICROGRAM/ACUATION INHALER
  11. PULMOZYME [Concomitant]
     Active Substance: DORNASE ALFA
     Route: 055

REACTIONS (8)
  - Urobilinogen urine [Recovering/Resolving]
  - Lymphadenopathy [Recovering/Resolving]
  - Haematochezia [Recovering/Resolving]
  - Aspiration [Unknown]
  - Faecaloma [Unknown]
  - Vomiting [Unknown]
  - Cough [Recovered/Resolved]
  - Lung infiltration [Recovered/Resolved]

NARRATIVE: CASE EVENT DATE: 20210101
